FAERS Safety Report 17778954 (Version 2)
Quarter: 2020Q3

REPORT INFORMATION
  Report Type: Report from Study
  Country: None (occurrence: US)
  Receive Date: 20200514
  Receipt Date: 20200714
  Transmission Date: 20201102
  Serious: Yes (Hospitalization, Other)
  Sender: FDA-Public Use
  Company Number: US-ABBVIE-20K-163-3219074-00

PATIENT
  Age: 33 Year
  Sex: Male
  Weight: 70.37 kg

DRUGS (2)
  1. HUMIRA [Suspect]
     Active Substance: ADALIMUMAB
     Indication: CROHN^S DISEASE
     Route: 058
     Dates: start: 201702, end: 201808
  2. HUMIRA [Suspect]
     Active Substance: ADALIMUMAB
     Route: 058
     Dates: start: 201809

REACTIONS (6)
  - Abdominal pain [Not Recovered/Not Resolved]
  - Terminal ileitis [Recovering/Resolving]
  - Adverse food reaction [Unknown]
  - Emotional disorder [Unknown]
  - Asthenia [Unknown]
  - Therapeutic product effect incomplete [Unknown]

NARRATIVE: CASE EVENT DATE: 201808
